FAERS Safety Report 5383789-7 (Version None)
Quarter: 2007Q3

REPORT INFORMATION
  Report Type: 
  Country: None (occurrence: None)
  Receive Date: 20070711
  Receipt Date: 20070702
  Transmission Date: 20080115
  Serious: Yes (Other)
  Sender: FDA-Public Use
  Company Number: GB-JNJFOC-20070700229

PATIENT
  Sex: Male
  Weight: 76 kg

DRUGS (5)
  1. REMICADE [Suspect]
     Indication: RHEUMATOID ARTHRITIS
     Route: 042
  2. METHOTREXATE [Concomitant]
  3. AMLODIPINE [Concomitant]
  4. CODEINE PHOSPHATE AND ACETAMINOPHEN [Concomitant]
  5. FOLIC ACID [Concomitant]

REACTIONS (1)
  - NEUROFIBROMA [None]
